FAERS Safety Report 9129021 (Version 2)
Quarter: 2014Q1

REPORT INFORMATION
  Report Type: Report from Study
  Country: US (occurrence: US)
  Receive Date: 20130125
  Receipt Date: 20140131
  Transmission Date: 20141002
  Serious: Yes (Other)
  Sender: FDA-Public Use
  Company Number: US-ROCHE-1183786

PATIENT
  Age: 63 Year
  Sex: Female

DRUGS (4)
  1. BEVACIZUMAB [Suspect]
     Indication: RECTAL CANCER
     Route: 065
  2. FOLINIC ACID [Suspect]
     Indication: RECTAL CANCER
     Route: 065
  3. OXALIPLATIN [Suspect]
     Indication: RECTAL CANCER
     Route: 065
  4. FLUOROURACIL [Suspect]
     Indication: RECTAL CANCER
     Route: 065

REACTIONS (1)
  - Arrhythmia [Unknown]
